FAERS Safety Report 8260350-8 (Version None)
Quarter: 2012Q2

REPORT INFORMATION
  Report Type: 
  Country: None (occurrence: None)
  Receive Date: 20120404
  Receipt Date: 20120322
  Transmission Date: 20120825
  Serious: Yes (Death, Hospitalization)
  Sender: FDA-Public Use
  Company Number: US-ELI_LILLY_AND_COMPANY-US201201003534

PATIENT
  Sex: Male
  Weight: 71.02 kg

DRUGS (6)
  1. COGENTIN [Concomitant]
     Dosage: 0.5 MG, BID
     Route: 048
     Dates: start: 20080101
  2. KLONOPIN [Concomitant]
     Dosage: 0.5 MG, BID
     Dates: start: 20111111
  3. ZYPREXA RELPREVV [Suspect]
     Indication: SCHIZOAFFECTIVE DISORDER
     Dosage: 405 MG, EVERY 2 WEEKS
     Route: 030
     Dates: start: 20110304
  4. LISINOPRIL [Concomitant]
     Dosage: 20 MG, UNK
     Route: 048
     Dates: start: 20080101
  5. KLONOPIN [Concomitant]
     Dosage: UNK
     Route: 048
     Dates: start: 20111104
  6. LITHIUM CARBONATE [Concomitant]
     Dosage: 300 MG, BID
     Route: 048
     Dates: start: 20111111

REACTIONS (3)
  - CORONARY ARTERY OCCLUSION [None]
  - CARDIAC ARREST [None]
  - OVERDOSE [None]
